FAERS Safety Report 9246619 (Version 1)
Quarter: 2013Q2

REPORT INFORMATION
  Report Type: Spontaneous
  Country: US (occurrence: US)
  Receive Date: 20130422
  Receipt Date: 20130422
  Transmission Date: 20140414
  Serious: No
  Sender: FDA-Public Use
  Company Number: US-B.I. PHARMACEUTICALS,INC./RIDGEFIELD-2013-BI-10031BP

PATIENT
  Sex: Female
  Weight: 50 kg

DRUGS (1)
  1. SPIRIVA [Suspect]
     Indication: CHRONIC OBSTRUCTIVE PULMONARY DISEASE
     Dosage: 8 MCG
     Route: 055
     Dates: start: 2004

REACTIONS (4)
  - Dyspnoea [Not Recovered/Not Resolved]
  - Appetite disorder [Not Recovered/Not Resolved]
  - Sneezing [Not Recovered/Not Resolved]
  - Weight fluctuation [Unknown]
